FAERS Safety Report 23771988 (Version 2)
Quarter: 2024Q2

REPORT INFORMATION
  Report Type: Report from Study
  Country: US (occurrence: US)
  Receive Date: 20240423
  Receipt Date: 20240523
  Transmission Date: 20240716
  Serious: Yes (Other)
  Sender: FDA-Public Use
  Company Number: US-ARGENX-2023-ARGX-US002602

PATIENT

DRUGS (1)
  1. VYVGART [Suspect]
     Active Substance: EFGARTIGIMOD ALFA-FCAB
     Indication: Myasthenia gravis
     Dosage: 10 MG/KG
     Route: 042
     Dates: start: 20230627

REACTIONS (10)
  - Myasthenia gravis [Unknown]
  - Hepatic cancer [Unknown]
  - Muscular weakness [Unknown]
  - Fall [Unknown]
  - Muscular weakness [Unknown]
  - Fall [Unknown]
  - Contusion [Unknown]
  - Herpes zoster [Unknown]
  - Malaise [Unknown]
  - Therapy interrupted [Unknown]
